FAERS Safety Report 9904437 (Version 1)
Quarter: 2014Q1

REPORT INFORMATION
  Report Type: Spontaneous
  Country: US (occurrence: US)
  Receive Date: 20140218
  Receipt Date: 20140218
  Transmission Date: 20141002
  Serious: No
  Sender: FDA-Public Use
  Company Number: US-HORIZON-DUE-0055-2013

PATIENT
  Age: 56 Year
  Sex: Female

DRUGS (1)
  1. DUEXIS [Suspect]
     Indication: MIGRAINE
     Dosage: START APPROXIMATELY 2-3 WEEKS BEFORE SYMPTOMS, ONLY 1 TABLET INTERMITTENTLY
     Dates: end: 20131021

REACTIONS (1)
  - Gastritis [Recovered/Resolved]
